FAERS Safety Report 8072736-5 (Version None)
Quarter: 2012Q1

REPORT INFORMATION
  Report Type: 
  Country: None (occurrence: None)
  Receive Date: 20120126
  Receipt Date: 20120112
  Transmission Date: 20120608
  Serious: Yes (Hospitalization)
  Sender: FDA-Public Use
  Company Number: GB-CELGENEUS-167-CCAZA-11100052

PATIENT
  Sex: Male
  Weight: 67.2 kg

DRUGS (11)
  1. PIPERACILLIN AND TAZOBACTAM [Concomitant]
     Indication: NEUTROPENIC SEPSIS
     Dosage: 4.5 GRAM
     Route: 041
     Dates: start: 20110417, end: 20110424
  2. AZACITIDINE [Suspect]
     Dosage: 75 MILLIGRAM/SQ. METER
     Route: 058
     Dates: start: 20110912, end: 20110919
  3. PAROXETINE [Concomitant]
     Indication: ANTIDEPRESSANT THERAPY
     Dosage: 20 MILLIGRAM
     Route: 048
  4. FLUCONAZOLE [Concomitant]
     Indication: ANTIFUNGAL PROPHYLAXIS
     Dosage: 50 MILLIGRAM
     Route: 048
     Dates: start: 20110430
  5. TRANEXAMIC ACID [Concomitant]
     Indication: THROMBOCYTOPENIA
     Dosage: 4.5 GRAM
     Route: 048
     Dates: start: 20110406
  6. GENTAMICIN [Concomitant]
     Indication: NEUTROPENIC SEPSIS
     Dosage: 460 MILLIGRAM
     Route: 041
     Dates: start: 20110417, end: 20110417
  7. AZACITIDINE [Suspect]
     Dosage: 75 MILLIGRAM/SQ. METER
     Route: 058
     Dates: start: 20110423, end: 20110429
  8. ACETAMINOPHEN [Concomitant]
     Dosage: 4 GRAM
     Route: 048
     Dates: start: 20110413
  9. CODEINE PHOSPHATE [Concomitant]
     Dosage: 30-60MG 4 TIMES DAILY
     Route: 048
     Dates: start: 20110416
  10. ACYCLOVIR [Concomitant]
     Indication: ANTIVIRAL PROPHYLAXIS
     Dosage: 600 MILLIGRAM
     Route: 048
     Dates: start: 20110430
  11. ONDANSETRON [Concomitant]
     Indication: ANTIEMETIC SUPPORTIVE CARE
     Route: 048
     Dates: start: 20110424, end: 20110428

REACTIONS (2)
  - LOSS OF CONSCIOUSNESS [None]
  - FALL [None]
